FAERS Safety Report 17201001 (Version 1)
Quarter: 2019Q4

REPORT INFORMATION
  Report Type: Spontaneous
  Country: IT (occurrence: IT)
  Receive Date: 20191226
  Receipt Date: 20191226
  Transmission Date: 20200122
  Serious: Yes (Life-Threatening)
  Sender: FDA-Public Use
  Company Number: IT-TEVA-2019-IT-1157012

PATIENT
  Age: 52 Year
  Sex: Female

DRUGS (1)
  1. ATORVASTATINA TEVA ITALIA [Suspect]
     Active Substance: ATORVASTATIN CALCIUM
     Indication: HYPERCHOLESTEROLAEMIA
     Dosage: 10 MG
     Route: 048

REACTIONS (2)
  - Dermatitis acneiform [Unknown]
  - Pruritus [Unknown]

NARRATIVE: CASE EVENT DATE: 20191123
